FAERS Safety Report 4780675-8 (Version None)
Quarter: 2005Q3

REPORT INFORMATION
  Report Type: 
  Country: None (occurrence: None)
  Receive Date: 20050926
  Receipt Date: 20050829
  Transmission Date: 20060218
  Serious: Yes (Disabling, Other)
  Sender: FDA-Public Use
  Company Number: 2005121094

PATIENT
  Age: 50 Year
  Sex: Female
  Weight: 90.7194 kg

DRUGS (9)
  1. NEURONTIN [Suspect]
     Indication: DIABETIC NEUROPATHY
     Dosage: 500 G (2 IN 1 D)
  2. NEURONTIN [Suspect]
     Indication: FEELING OF RELAXATION
     Dosage: 500 G (2 IN 1 D)
  3. NEURONTIN [Suspect]
     Indication: MIGRAINE
     Dosage: 500 G (2 IN 1 D)
  4. DETROL [Suspect]
     Indication: MICTURITION URGENCY
     Dosage: 4 MG ( 4 MG, 1 IN 1 D)
  5. LIPITOR [Suspect]
     Indication: BLOOD CHOLESTEROL INCREASED
     Dosage: 10 MG (10 MG, 1 IN 1 D)
  6. GLUCOTROL [Concomitant]
  7. AVANDIA [Concomitant]
  8. ASPIRIN [Concomitant]
  9. COZAAR [Concomitant]

REACTIONS (4)
  - BONE PAIN [None]
  - CONDITION AGGRAVATED [None]
  - IMPAIRED WORK ABILITY [None]
  - NEUROPATHY [None]
